FAERS Safety Report 18972337 (Version 2)
Quarter: 2021Q1

REPORT INFORMATION
  Report Type: Spontaneous
  Country: LB (occurrence: LB)
  Receive Date: 20210305
  Receipt Date: 20210319
  Transmission Date: 20210420
  Serious: Yes (Other)
  Sender: FDA-Public Use
  Company Number: LB-BEH-2021128849

PATIENT
  Age: 35 Year
  Sex: Female

DRUGS (4)
  1. HUMAN IMMUNOGLOBULIN (NC) (IMMUNOGLOBULIN HUMAN NORMAL) [Suspect]
     Active Substance: HUMAN IMMUNOGLOBULIN G
     Indication: NEONATAL ALLOIMMUNE THROMBOCYTOPENIA
  2. PREDNISONE. [Suspect]
     Active Substance: PREDNISONE
     Indication: PROPHYLAXIS
     Dosage: 60 MILLIGRAM, QD
     Route: 065
  3. HUMAN IMMUNOGLOBULIN (NC) (IMMUNOGLOBULIN HUMAN NORMAL) [Suspect]
     Active Substance: HUMAN IMMUNOGLOBULIN G
     Indication: PROPHYLAXIS
     Dosage: 1 GRAM PER KILOGRAM, PER WEEK
     Route: 042
  4. PREDNISONE. [Suspect]
     Active Substance: PREDNISONE
     Indication: NEONATAL ALLOIMMUNE THROMBOCYTOPENIA

REACTIONS (8)
  - Fatigue [Unknown]
  - Sjogren^s syndrome [Unknown]
  - Off label use [Unknown]
  - Dry mouth [Unknown]
  - Dry eye [Unknown]
  - Exposure during pregnancy [Unknown]
  - No adverse event [Unknown]
  - Arthralgia [Unknown]
